FAERS Safety Report 16036774 (Version 2)
Quarter: 2019Q2

REPORT INFORMATION
  Report Type: Spontaneous
  Country: US (occurrence: US)
  Receive Date: 20190305
  Receipt Date: 20190617
  Transmission Date: 20190711
  Serious: Yes (Other)
  Sender: FDA-Public Use
  Company Number: US-IMPAX LABORATORIES, LLC-2018-IPXL-02955

PATIENT
  Sex: Female
  Weight: 54 kg

DRUGS (7)
  1. RYTARY [Suspect]
     Active Substance: CARBIDOPA\LEVODOPA
     Indication: PARKINSON^S DISEASE
     Dosage: 36.25-145MG, 3 CAPSULES FOUR TIMES DAILY
     Route: 048
  2. RYTARY [Suspect]
     Active Substance: CARBIDOPA\LEVODOPA
     Dosage: 36.25/145 MG, TWO CAPSULES, EVERY 5 HOURS (8 CAPSULES DAILY)
     Route: 048
     Dates: start: 20180709, end: 2018
  3. RYTARY [Suspect]
     Active Substance: CARBIDOPA\LEVODOPA
     Dosage: 36.25/145 MG, ONE CAPSULE, FOUR TIMES DAILY
     Route: 048
     Dates: start: 2018, end: 201808
  4. RYTARY [Suspect]
     Active Substance: CARBIDOPA\LEVODOPA
     Dosage: 48.75/195 MG, ONE CAPSULE, FOUR TIMES DAILY
     Route: 048
     Dates: start: 2018, end: 201808
  5. RYTARY [Suspect]
     Active Substance: CARBIDOPA\LEVODOPA
     Dosage: 36.25-145MG, 3 CAPSULE, TID
     Route: 048
  6. ZOCOR [Concomitant]
     Active Substance: SIMVASTATIN
     Indication: BLOOD CHOLESTEROL INCREASED
     Dosage: UNK
     Route: 065
  7. RYTARY [Suspect]
     Active Substance: CARBIDOPA\LEVODOPA
     Dosage: 36.25/145 MG, TWO CAPSULES, EVERY 5 HOURS (8 CAPSULES DAILY)
     Route: 048
     Dates: start: 201808

REACTIONS (6)
  - Tremor [Not Recovered/Not Resolved]
  - Drug ineffective [Unknown]
  - Loss of consciousness [Unknown]
  - Dizziness [Unknown]
  - Diarrhoea [Not Recovered/Not Resolved]
  - Gait disturbance [Unknown]

NARRATIVE: CASE EVENT DATE: 2018
